FAERS Safety Report 19321477 (Version 1)
Quarter: 2021Q2

REPORT INFORMATION
  Report Type: Spontaneous
  Country: US (occurrence: US)
  Receive Date: 20210528
  Receipt Date: 20210528
  Transmission Date: 20210717
  Serious: No
  Sender: FDA-Public Use
  Company Number: US-JNJFOC-20210521526

PATIENT
  Age: 47 Year
  Sex: Female

DRUGS (1)
  1. ZYRTEC [Suspect]
     Active Substance: CETIRIZINE HYDROCHLORIDE
     Indication: URTICARIA
     Route: 065
     Dates: start: 20210507

REACTIONS (10)
  - Fatigue [Unknown]
  - Feeling abnormal [Unknown]
  - Presyncope [Unknown]
  - Abdominal pain [Unknown]
  - Loss of personal independence in daily activities [Unknown]
  - Dizziness [Unknown]
  - Therapeutic response unexpected [Unknown]
  - Somnolence [Unknown]
  - Product use in unapproved indication [Unknown]
  - Palpitations [Unknown]
